FAERS Safety Report 7798764-2 (Version None)
Quarter: 2011Q4

REPORT INFORMATION
  Report Type: 
  Country: None (occurrence: None)
  Receive Date: 20111006
  Receipt Date: 20110928
  Transmission Date: 20120403
  Serious: Yes (Other)
  Sender: FDA-Public Use
  Company Number: PHHY2011US85982

PATIENT
  Age: 45 Year
  Sex: Female

DRUGS (3)
  1. TACROLIMUS [Suspect]
     Indication: IMMUNOSUPPRESSANT DRUG THERAPY
     Dosage: UNK UKN, UNK
  2. MYCOPHENOLATE MOFETIL [Suspect]
     Indication: IMMUNOSUPPRESSANT DRUG THERAPY
     Dosage: UNK UKN, UNK
  3. PREDNISONE [Suspect]
     Indication: IMMUNOSUPPRESSANT DRUG THERAPY
     Dosage: UNK UKN, UNK

REACTIONS (16)
  - PYURIA [None]
  - BLOOD CREATINE INCREASED [None]
  - PYELONEPHRITIS [None]
  - PYREXIA [None]
  - CHILLS [None]
  - VOMITING [None]
  - DYSURIA [None]
  - HYPERKALAEMIA [None]
  - METABOLIC ACIDOSIS [None]
  - HYDRONEPHROSIS [None]
  - NAUSEA [None]
  - RENAL FAILURE ACUTE [None]
  - BACK PAIN [None]
  - HYPONATRAEMIA [None]
  - URINE ABNORMALITY [None]
  - URINARY TRACT INFECTION [None]
